FAERS Safety Report 13874620 (Version 1)
Quarter: 2017Q3

REPORT INFORMATION
  Report Type: Spontaneous
  Country: US (occurrence: US)
  Receive Date: 20170816
  Receipt Date: 20170816
  Transmission Date: 20171127
  Serious: No
  Sender: FDA-Public Use
  Company Number: US-ROCHE-1145224

PATIENT
  Sex: Male

DRUGS (6)
  1. AFLIBERCEPT [Suspect]
     Active Substance: AFLIBERCEPT
     Route: 050
     Dates: start: 201202
  2. AVASTIN [Suspect]
     Active Substance: BEVACIZUMAB
     Indication: NEOVASCULAR AGE-RELATED MACULAR DEGENERATION
     Route: 065
  3. LUCENTIS [Suspect]
     Active Substance: RANIBIZUMAB
     Indication: NEOVASCULAR AGE-RELATED MACULAR DEGENERATION
     Route: 065
  4. AFLIBERCEPT [Suspect]
     Active Substance: AFLIBERCEPT
     Indication: NEOVASCULAR AGE-RELATED MACULAR DEGENERATION
     Route: 050
     Dates: start: 201202
  5. AFLIBERCEPT [Suspect]
     Active Substance: AFLIBERCEPT
     Route: 050
     Dates: start: 201205
  6. AFLIBERCEPT [Suspect]
     Active Substance: AFLIBERCEPT
     Route: 050
     Dates: start: 20120730

REACTIONS (2)
  - Vitreous floaters [Not Recovered/Not Resolved]
  - Cataract [Not Recovered/Not Resolved]
